FAERS Safety Report 12721873 (Version 2)
Quarter: 2016Q3

REPORT INFORMATION
  Report Type: Spontaneous
  Country: US (occurrence: US)
  Receive Date: 20160907
  Receipt Date: 20160929
  Transmission Date: 20161109
  Serious: Yes (Death, Other)
  Sender: FDA-Public Use
  Company Number: US-PFIZER INC-2016411573

PATIENT
  Age: 72 Year
  Sex: Male

DRUGS (1)
  1. SUTENT [Suspect]
     Active Substance: SUNITINIB MALATE
     Indication: RENAL CELL CARCINOMA
     Dosage: 50 MG, 1X/DAY
     Dates: start: 20160801

REACTIONS (14)
  - Feeding disorder [Unknown]
  - Constipation [Unknown]
  - Death [Fatal]
  - Dyspnoea [Unknown]
  - Dry skin [Unknown]
  - Fatigue [Unknown]
  - Dry mouth [Unknown]
  - Asthenia [Unknown]
  - Decreased appetite [Unknown]
  - Insomnia [Unknown]
  - Haemorrhage [Unknown]
  - Dysphagia [Unknown]
  - Blood urine present [Unknown]
  - Abdominal distension [Unknown]

NARRATIVE: CASE EVENT DATE: 20160822
